FAERS Safety Report 8995791 (Version 1)
Quarter: 2013Q1

REPORT INFORMATION
  Report Type: Spontaneous
  Country: US (occurrence: US)
  Receive Date: 20130103
  Receipt Date: 20130103
  Transmission Date: 20140127
  Serious: No
  Sender: FDA-Public Use
  Company Number: US-ABBOTT-12P-163-0926534-00

PATIENT
  Sex: Female
  Weight: 56.75 kg

DRUGS (15)
  1. SYNTHROID [Suspect]
     Indication: AUTOIMMUNE THYROIDITIS
     Dosage: MONDAYS, WEDNESDAYS, + FRIDAYS
     Route: 048
     Dates: start: 2003
  2. SYNTHROID [Suspect]
     Indication: THYROID DISORDER
  3. SYNTHROID [Suspect]
     Indication: HYPOTHYROIDISM
  4. SYNTHROID [Suspect]
     Indication: AUTOIMMUNE THYROIDITIS
     Dosage: TUESDAYS, THURSDAYS, AND SUNDAYS
     Route: 048
     Dates: start: 2003
  5. SYNTHROID [Suspect]
     Indication: THYROID DISORDER
  6. SYNTHROID [Suspect]
     Indication: HYPOTHYROIDISM
  7. CRESTOR [Concomitant]
     Indication: PRODUCT USED FOR UNKNOWN INDICATION
  8. ATENOLOL [Concomitant]
     Indication: PRODUCT USED FOR UNKNOWN INDICATION
  9. UNSPECIFIED [Concomitant]
     Indication: OSTEOPOROSIS
  10. VITAMIN D3 [Concomitant]
     Indication: PRODUCT USED FOR UNKNOWN INDICATION
  11. COENZYME Q10 [Concomitant]
     Indication: PRODUCT USED FOR UNKNOWN INDICATION
  12. PPI [Concomitant]
     Indication: PRODUCT USED FOR UNKNOWN INDICATION
  13. VITAMIN B12 [Concomitant]
     Indication: PRODUCT USED FOR UNKNOWN INDICATION
  14. OMEGA 3 [Concomitant]
     Indication: SUPPLEMENTATION THERAPY
  15. CALCIUM [Concomitant]
     Indication: PRODUCT USED FOR UNKNOWN INDICATION

REACTIONS (3)
  - Increased upper airway secretion [Not Recovered/Not Resolved]
  - Inappropriate schedule of drug administration [Not Recovered/Not Resolved]
  - Weight decreased [Not Recovered/Not Resolved]
